FAERS Safety Report 4903443-2 (Version None)
Quarter: 2006Q1

REPORT INFORMATION
  Report Type: 
  Country: None (occurrence: None)
  Receive Date: 20060203
  Receipt Date: 20060116
  Transmission Date: 20060701
  Serious: Yes (Life-Threatening)
  Sender: FDA-Public Use
  Company Number: 2006VX000067

PATIENT
  Age: 48 Year
  Sex: Male

DRUGS (2)
  1. INTERFERON ALFACON-1 (INTERFERON ALFACON-1) [Suspect]
     Indication: HEPATITIS C
     Dosage: SEE IMAGE
  2. RIBAVIRIN [Concomitant]
     Dosage: 400 MG; BID; PO
     Route: 048

REACTIONS (29)
  - ALANINE AMINOTRANSFERASE INCREASED [None]
  - ARTHRALGIA [None]
  - ASPARTATE AMINOTRANSFERASE INCREASED [None]
  - ATRIAL TACHYCARDIA [None]
  - CHILLS [None]
  - CONTUSION [None]
  - DECREASED APPETITE [None]
  - DISEASE PROGRESSION [None]
  - DYSPNOEA [None]
  - ECZEMA [None]
  - FACE INJURY [None]
  - GAMMA-GLUTAMYLTRANSFERASE INCREASED [None]
  - GLUCOSE URINE PRESENT [None]
  - HAEMATOCRIT DECREASED [None]
  - HAEMOGLOBIN DECREASED [None]
  - HAEMOPTYSIS [None]
  - HEADACHE [None]
  - LUNG NEOPLASM MALIGNANT [None]
  - MYALGIA [None]
  - NECK PAIN [None]
  - NEUTROPHIL COUNT DECREASED [None]
  - PAIN OF SKIN [None]
  - PALPITATIONS [None]
  - PHARYNGOLARYNGEAL PAIN [None]
  - PLATELET COUNT DECREASED [None]
  - PRURITUS GENERALISED [None]
  - PYREXIA [None]
  - RED BLOOD CELL COUNT DECREASED [None]
  - WHITE BLOOD CELL COUNT DECREASED [None]
